FAERS Safety Report 16155388 (Version 4)
Quarter: 2019Q2

REPORT INFORMATION
  Report Type: Report from Study
  Country: None (occurrence: DE)
  Receive Date: 20190403
  Receipt Date: 20190422
  Transmission Date: 20190711
  Serious: Yes (Hospitalization)
  Sender: FDA-Public Use
  Company Number: DE-ABBVIE-19S-062-2730469-00

PATIENT
  Sex: Male
  Weight: 65 kg

DRUGS (7)
  1. MADOPAR LT [Concomitant]
     Active Substance: BENSERAZIDE HYDROCHLORIDE\LEVODOPA
     Indication: PRODUCT USED FOR UNKNOWN INDICATION
  2. L-THYROXIN [Concomitant]
     Active Substance: LEVOTHYROXINE SODIUM
     Indication: PRODUCT USED FOR UNKNOWN INDICATION
  3. MADOPAR DEPOT [Concomitant]
     Active Substance: BENSERAZIDE HYDROCHLORIDE\LEVODOPA
     Indication: PRODUCT USED FOR UNKNOWN INDICATION
  4. LEVOTHYROXINE. [Concomitant]
     Active Substance: LEVOTHYROXINE
     Indication: PRODUCT USED FOR UNKNOWN INDICATION
  5. DUODOPA [Suspect]
     Active Substance: CARBIDOPA\LEVODOPA
     Indication: PARKINSON^S DISEASE
     Dosage: MD 8 ML; CRD 2.1 ML/HR; ED 1 ML
     Route: 050
     Dates: start: 20181217
  6. CLOZAPIN [Concomitant]
     Active Substance: CLOZAPINE
     Indication: HALLUCINATION
     Route: 048
  7. NEUPRO [Concomitant]
     Active Substance: ROTIGOTINE
     Indication: CHILLS
     Route: 062

REACTIONS (3)
  - Dysphagia [Unknown]
  - Pneumonia aspiration [Unknown]
  - Confusional state [Not Recovered/Not Resolved]
